FAERS Safety Report 15959493 (Version 2)
Quarter: 2019Q1

REPORT INFORMATION
  Report Type: Report from Study
  Country: DE (occurrence: DE)
  Receive Date: 20190214
  Receipt Date: 20190302
  Transmission Date: 20190417
  Serious: Yes (Hospitalization, Other)
  Sender: FDA-Public Use
  Company Number: DE-ACCORD-106886

PATIENT
  Age: 54 Year
  Sex: Male
  Weight: 120 kg

DRUGS (42)
  1. NEXIUM [Concomitant]
     Active Substance: ESOMEPRAZOLE MAGNESIUM
     Dosage: DAILY DOSE: 20 MG MILLGRAM(S) EVERY DAYS
     Route: 048
  2. FOLINIC ACID [Suspect]
     Active Substance: LEUCOVORIN
     Indication: PRODUCT USED FOR UNKNOWN INDICATION
     Dosage: DAILY DOSE: 400 MG/M2 MILLIGRAM(S)/SQ. METER EVERY 2 WEEKS
     Route: 042
     Dates: start: 20160816, end: 20160820
  3. DEXAMETHASONE. [Concomitant]
     Active Substance: DEXAMETHASONE
     Dosage: DAILY DOSE: 1 MG MILLGRAM(S) EVERY DAYS
     Route: 048
     Dates: start: 20160620
  4. FOLINIC ACID [Suspect]
     Active Substance: LEUCOVORIN
     Indication: COLORECTAL CANCER
     Dosage: 400 MG FROM 16-AUG-2016 TO 20-AUG-2016,400 MG 09-JUN-2016 TO 11-JUN-2016
     Route: 042
     Dates: start: 20160802, end: 20160816
  5. TAZOBAC [Concomitant]
     Active Substance: PIPERACILLIN SODIUM\TAZOBACTAM SODIUM
     Indication: FEBRILE INFECTION
     Dosage: 13500 MG FROM 14-FEB-2016 TO 15-FEB-2016,05-APR-2016 TO 11-APR-2016,
     Route: 042
     Dates: start: 20160608, end: 20160613
  6. IRINOTECAN [Concomitant]
     Active Substance: IRINOTECAN
     Indication: COLORECTAL CANCER
     Dosage: DAILY DOSE: 330 MG MILLGRAM(S) EVERY 2 WEEKS
     Route: 042
     Dates: start: 20160609, end: 20160609
  7. FOLINIC ACID [Suspect]
     Active Substance: LEUCOVORIN
     Indication: PRODUCT USED FOR UNKNOWN INDICATION
     Dosage: DAILY DOSE: 896 MG MILLGRAM(S) EVERY 2 WEEKS
     Route: 042
     Dates: start: 20160711, end: 20160711
  8. AVASTIN [Suspect]
     Active Substance: BEVACIZUMAB
     Indication: PRODUCT USED FOR UNKNOWN INDICATION
     Dosage: 29/FEB/2016: MOST RECENT DOSE
     Route: 042
     Dates: start: 20160229
  9. FOLINIC ACID [Concomitant]
     Active Substance: LEUCOVORIN
     Indication: COLORECTAL CANCER
     Dosage: 720 MG ON 04-APR-2016 400 MG 09-JUN-2016 TO 11-JUN-2016
     Route: 042
     Dates: start: 20160212, end: 20160321
  10. DIFLUCAN [Concomitant]
     Active Substance: FLUCONAZOLE
     Dosage: DAILY DOSE: 400 MG MILLGRAM(S) EVERY DAYS
     Route: 042
     Dates: start: 20161120, end: 20161121
  11. AVASTIN [Suspect]
     Active Substance: BEVACIZUMAB
     Indication: PRODUCT USED FOR UNKNOWN INDICATION
     Dosage: DAILY DOSE: 550 MG MILLGRAM(S) EVERY 2 WEEKS
     Route: 042
     Dates: start: 20160404, end: 20160404
  12. FOLINIC ACID [Suspect]
     Active Substance: LEUCOVORIN
     Indication: COLORECTAL CANCER
     Dosage: DAILY DOSE: 600 MG MILLGRAM(S) EVERY 2 WEEKS
     Route: 042
     Dates: start: 20160212, end: 20160321
  13. CLONT [Concomitant]
     Dosage: DAILY DOSE: 1500 MG MILLGRAM(S) EVERY DAYS
     Route: 042
     Dates: start: 20161120, end: 20161122
  14. NEXIUM [Concomitant]
     Active Substance: ESOMEPRAZOLE MAGNESIUM
     Indication: PROPHYLAXIS
     Dosage: DAILY DOSE: 40 MG MILLGRAM(S) EVERY DAYS
     Route: 048
     Dates: start: 201601
  15. DEXAMETHASONE. [Concomitant]
     Active Substance: DEXAMETHASONE
     Dosage: DAILY DOSE: 1 MG MILLGRAM(S) EVERY DAYS
     Route: 048
     Dates: start: 20160511
  16. FOLINIC ACID [Suspect]
     Active Substance: LEUCOVORIN
     Dosage: DAILY DOSE: 720 MG MILLGRAM(S) EVERY 2 WEEKS
     Route: 042
     Dates: start: 20160404, end: 20160404
  17. DIFLUCAN [Concomitant]
     Active Substance: FLUCONAZOLE
     Dosage: DAILY DOSE: 200 MG MILLGRAM(S) EVERY DAYS
     Route: 042
     Dates: start: 20161121, end: 20161122
  18. KONAKION [Concomitant]
     Active Substance: PHYTONADIONE
     Dosage: DAILY DOSE: 10 MG MILLGRAM(S) EVERY DAYS
     Route: 042
     Dates: start: 20160621, end: 20160621
  19. AVASTIN [Suspect]
     Active Substance: BEVACIZUMAB
     Indication: PRODUCT USED FOR UNKNOWN INDICATION
     Dosage: 460 MG?MOST RECENT DOSE ON 20/AUG/2016
     Route: 042
     Dates: start: 20160816
  20. FOLINIC ACID [Suspect]
     Active Substance: LEUCOVORIN
     Indication: PRODUCT USED FOR UNKNOWN INDICATION
     Dosage: DAILY DOSE: 400 MG MILLGRAM(S) EVERY 2 WEEKS
     Route: 042
     Dates: start: 20160609, end: 20160611
  21. FOLINIC ACID [Suspect]
     Active Substance: LEUCOVORIN
     Indication: PRODUCT USED FOR UNKNOWN INDICATION
     Dosage: DAILY DOSE: 800 MG MILLGRAM(S) EVERY 2 WEEKS
     Route: 042
     Dates: start: 20160627, end: 20160627
  22. METRONIDAZOLE. [Concomitant]
     Active Substance: METRONIDAZOLE
     Indication: DIARRHOEA
     Dosage: DAILY DOSE: 1500 MG MILLGRAM(S) EVERY DAYS
     Route: 042
     Dates: start: 20160620, end: 20160624
  23. FOLINIC ACID [Suspect]
     Active Substance: LEUCOVORIN
     Indication: PRODUCT USED FOR UNKNOWN INDICATION
     Dosage: DAILY DOSE: 720 MG MILLGRAM(S) EVERY 2 WEEKS
     Route: 042
     Dates: start: 20160404, end: 20160404
  24. DEXAMETHASONE. [Concomitant]
     Active Substance: DEXAMETHASONE
     Dosage: DAILY DOSE: 2 MG MILLGRAM(S) EVERY DAYS
     Route: 048
     Dates: start: 20160210, end: 20160404
  25. AVASTIN [Suspect]
     Active Substance: BEVACIZUMAB
     Indication: COLORECTAL CANCER
     Dosage: ON 29-FEB-2016 ,5 MG/KG MILLIGRAM(S)/KILOGRAM ON 16-AUG-2016
     Route: 042
     Dates: start: 20160212
  26. OXALIPLATIN. [Concomitant]
     Active Substance: OXALIPLATIN
     Indication: COLORECTAL CANCER
     Dosage: 170 MG 04-APR-2016 TO 11-JUL-2016 ON 27-JUN-2016,180 MG ON 04-APR-2016
     Route: 042
     Dates: start: 20160212, end: 20160321
  27. DEXAMETHASONE. [Concomitant]
     Active Substance: DEXAMETHASONE
     Dosage: 10-FEB-2016 TO 04-APR-2016,4 MG JAN-2016 TO 09-FEB-2016,1 MG ON 20-JUN-2016,11-MAY-2016
     Route: 048
     Dates: start: 20161215, end: 20161221
  28. FLUOROURACIL. [Suspect]
     Active Substance: FLUOROURACIL
     Indication: COLORECTAL CANCER
     Dosage: 6000 MG 27-JUN-2016 TO 29-JUN-2016 11-MAY-2016 TO 26-MAY-2016, 800 G FROM 02-AUG-2016 TO 18-AUG-2016
     Route: 041
     Dates: start: 20160212, end: 20160323
  29. FLUOROURACIL. [Concomitant]
     Active Substance: FLUOROURACIL
     Dosage: 1408 MG 04 TO 05-APR-2016,4500 MG 12-FEB-2016 TO 23-MAR-2016
     Route: 041
     Dates: start: 20160212, end: 20160323
  30. PANTOPRAZOLE [Concomitant]
     Active Substance: PANTOPRAZOLE
     Dosage: FOR STOMACH PROTECTION
     Route: 048
  31. POTASSIUM [Concomitant]
     Active Substance: POTASSIUM
     Indication: HYPOKALAEMIA
     Dosage: ALSO RECEIVED ON 23-NOV-2016
     Route: 042
  32. FOLINIC ACID [Suspect]
     Active Substance: LEUCOVORIN
     Indication: PRODUCT USED FOR UNKNOWN INDICATION
     Dosage: DAILY DOSE: 872 MG/M2 MILLIGRAM(S)/SQ. METER EVERY 2 WEEKS
     Route: 042
     Dates: start: 20161103, end: 20161103
  33. FOLINIC ACID [Suspect]
     Active Substance: LEUCOVORIN
     Indication: COLORECTAL CANCER
     Dosage: DAILY DOSE: 600 MG MILLGRAM(S) EVERY 2 WEEKS
     Route: 042
     Dates: start: 20160212, end: 20160323
  34. FOLINIC ACID [Suspect]
     Active Substance: LEUCOVORIN
     Indication: PRODUCT USED FOR UNKNOWN INDICATION
     Dosage: DAILY DOSE: 800 MG MILLGRAM(S) EVERY 2 WEEKS
     Route: 042
     Dates: start: 20160511, end: 20160524
  35. POTASSIUM CHLORIDE. [Concomitant]
     Active Substance: POTASSIUM CHLORIDE
     Dosage: DAILY DOSE: 3600 MG MILLGRAM(S) EVERY DAYS
     Route: 048
     Dates: start: 20161123, end: 20161128
  36. NEUPOGEN [Concomitant]
     Active Substance: FILGRASTIM
     Indication: FEBRILE NEUTROPENIA
     Dosage: DAILY DOSE: 48000 IU INTERNATIONAL UNIT(S)
     Route: 058
     Dates: start: 20160621, end: 20160623
  37. MEROPENEM. [Concomitant]
     Active Substance: MEROPENEM
     Indication: INFECTION
     Dosage: 1500 MG  11-MAR-2016 TO 16-MAR-2016,3000MG 17-MAR-2016 TO 23-MAR-2016,300 MG
     Route: 065
     Dates: start: 20160420, end: 201605
  38. REKAWAN [Concomitant]
     Active Substance: POTASSIUM CHLORIDE
     Dosage: DAILY DOSE: 1200 MG MILLGRAM(S) EVERY 3 DAYS
     Route: 048
     Dates: start: 20160625, end: 20160630
  39. CLEXANE [Concomitant]
     Active Substance: ENOXAPARIN SODIUM
     Dosage: AFTER PULMONARY EMBOLISM
     Route: 058
     Dates: start: 201604
  40. DEXAMETHASONE. [Concomitant]
     Active Substance: DEXAMETHASONE
     Indication: TUMOUR ASSOCIATED FEVER
     Dosage: DAILY DOSE: 4 MG MILLGRAM(S) EVERY DAYS
     Route: 048
     Dates: start: 201601, end: 20160209
  41. POTASSIUM CHLORIDE. [Concomitant]
     Active Substance: POTASSIUM CHLORIDE
     Indication: HYPOKALAEMIA
     Dosage: DAILY DOSE: 600 MG MILLGRAM(S) EVERY 3 DAYS
     Route: 048
     Dates: start: 20160624, end: 20160625
  42. DEXAMETHASONE. [Concomitant]
     Active Substance: DEXAMETHASONE
     Dosage: DAILY DOSE: 1 MG MILLGRAM(S) EVERY DAYS
     Route: 048
     Dates: start: 201607

REACTIONS (12)
  - Febrile infection [Recovered/Resolved]
  - Diarrhoea [Recovered/Resolved]
  - Enteritis [Recovering/Resolving]
  - Urinary tract infection [Unknown]
  - Pulmonary infarction [Recovered/Resolved]
  - Iatrogenic infection [Recovered/Resolved]
  - Infectious pleural effusion [Recovered/Resolved]
  - Pulmonary embolism [Recovered/Resolved]
  - Pneumonia [Recovered/Resolved]
  - Cholangitis [Recovered/Resolved]
  - Febrile neutropenia [Recovered/Resolved]
  - Hypokalaemia [Recovered/Resolved]

NARRATIVE: CASE EVENT DATE: 20160311
